FAERS Safety Report 15236110 (Version 1)
Quarter: 2018Q3

REPORT INFORMATION
  Report Type: Report from Study
  Country: US (occurrence: US)
  Receive Date: 20180803
  Receipt Date: 20180803
  Transmission Date: 20181010
  Serious: Yes (Hospitalization, Other)
  Sender: FDA-Public Use
  Company Number: US-ROCHE-2161743

PATIENT
  Sex: Male

DRUGS (2)
  1. ESBRIET [Suspect]
     Active Substance: PIRFENIDONE
     Indication: IDIOPATHIC PULMONARY FIBROSIS
     Dosage: ADVANCED IN DOSAGE TOO FAST
     Route: 065
     Dates: start: 20180611
  2. ESBRIET [Suspect]
     Active Substance: PIRFENIDONE
     Dosage: ADVANCED IN DOSAGE TOO FAST
     Route: 065

REACTIONS (4)
  - Headache [Recovered/Resolved]
  - Hepatic cirrhosis [Unknown]
  - Abdominal pain [Recovered/Resolved]
  - Decreased appetite [Recovered/Resolved]
